FAERS Safety Report 22285357 (Version 1)
Quarter: 2023Q2

REPORT INFORMATION
  Report Type: Spontaneous
  Country: US (occurrence: None)
  Receive Date: 20230503
  Receipt Date: 20230503
  Transmission Date: 20230721
  Serious: Yes (Life-Threatening, Disabling, Other)
  Sender: FDA-Public Use
  Company Number: None

PATIENT
  Sex: Female

DRUGS (12)
  1. DULOXETINE HYDROCHLORIDE [Suspect]
     Active Substance: DULOXETINE HYDROCHLORIDE
     Indication: Neuropathy peripheral
     Dosage: FREQUENCY : AT BEDTIME;?
     Route: 048
     Dates: start: 2000, end: 20211224
  2. DULOXETINE HYDROCHLORIDE [Suspect]
     Active Substance: DULOXETINE HYDROCHLORIDE
     Indication: Depression
  3. DULOXETINE HYDROCHLORIDE [Suspect]
     Active Substance: DULOXETINE HYDROCHLORIDE
     Indication: Anxiety
  4. DEVICE\INSULIN NOS [Concomitant]
     Active Substance: DEVICE\INSULIN NOS
  5. cgm [Concomitant]
  6. LISINOPRIL [Concomitant]
     Active Substance: LISINOPRIL
  7. CRESTOR [Concomitant]
     Active Substance: ROSUVASTATIN CALCIUM
  8. LOW DOSE ASPIRIN [Concomitant]
     Active Substance: ASPIRIN
  9. GABA [Concomitant]
     Active Substance: HOMEOPATHICS
  10. VITAMINS [Concomitant]
     Active Substance: VITAMINS
  11. PROBIOTICS NOS [Concomitant]
     Active Substance: PROBIOTICS NOS
  12. FIASP INSULIN [Concomitant]

REACTIONS (15)
  - Brain injury [None]
  - Loss of consciousness [None]
  - Foaming at mouth [None]
  - Blood glucose decreased [None]
  - Disorientation [None]
  - Disturbance in attention [None]
  - Drug ineffective [None]
  - Intentional product use issue [None]
  - Constipation [None]
  - Suicidal ideation [None]
  - Insomnia [None]
  - Mood swings [None]
  - Crying [None]
  - Anger [None]
  - Nervous system disorder [None]
